FAERS Safety Report 11504385 (Version 1)
Quarter: 2015Q3

REPORT INFORMATION
  Report Type: Spontaneous
  Country: US (occurrence: US)
  Receive Date: 20150915
  Receipt Date: 20150915
  Transmission Date: 20151125
  Serious: Yes (Hospitalization, Other)
  Sender: FDA-Public Use
  Company Number: US-PAR PHARMACEUTICAL COMPANIES-2015SCPR014278

PATIENT

DRUGS (1)
  1. BUPROPION HCL XL [Suspect]
     Active Substance: BUPROPION HYDROCHLORIDE
     Indication: PRODUCT USED FOR UNKNOWN INDICATION
     Dosage: UNK UNK, UNKNOWN
     Route: 048

REACTIONS (14)
  - Quadriparesis [Unknown]
  - Microcytic anaemia [Unknown]
  - Hypotension [Unknown]
  - Accidental overdose [Unknown]
  - Drug screen false positive [Unknown]
  - Hypoxic-ischaemic encephalopathy [Not Recovered/Not Resolved]
  - Blindness cortical [Unknown]
  - Hypothermia [Unknown]
  - Alanine aminotransferase increased [None]
  - Status epilepticus [Unknown]
  - Metabolic acidosis [Unknown]
  - Sinus tachycardia [Unknown]
  - Cardio-respiratory arrest [Unknown]
  - Aspartate aminotransferase increased [None]
